FAERS Safety Report 18423909 (Version 2)
Quarter: 2021Q3

REPORT INFORMATION
  Report Type: Report from Study
  Country: CO (occurrence: CO)
  Receive Date: 20201025
  Receipt Date: 20210916
  Transmission Date: 20211014
  Serious: Yes (Hospitalization)
  Sender: FDA-Public Use
  Company Number: PHHY2018CO141932

PATIENT
  Age: 2 Year
  Sex: Female
  Weight: 11.8 kg

DRUGS (5)
  1. REVOLADE [Suspect]
     Active Substance: ELTROMBOPAG OLAMINE
     Dosage: 25 MG, QD
     Route: 048
     Dates: start: 201810
  2. IMMUNOGLOBULIN [Concomitant]
     Indication: PRODUCT USED FOR UNKNOWN INDICATION
     Dosage: UNK
     Route: 048
  3. REVOLADE [Suspect]
     Active Substance: ELTROMBOPAG OLAMINE
     Indication: IMMUNE THROMBOCYTOPENIA
     Dosage: 25 MG, QD
     Route: 048
     Dates: start: 201808
  4. TRIMETHOPRIM. [Concomitant]
     Active Substance: TRIMETHOPRIM
     Indication: PRODUCT USED FOR UNKNOWN INDICATION
     Dosage: UNK
     Route: 065
  5. REVOLADE [Suspect]
     Active Substance: ELTROMBOPAG OLAMINE
     Dosage: 25 MG, QD
     Route: 048

REACTIONS (11)
  - Gastrostomy tube site complication [Recovered/Resolved]
  - Influenza [Recovered/Resolved]
  - Platelet count decreased [Recovered/Resolved]
  - Vomiting [Unknown]
  - Pneumonia [Recovered/Resolved]
  - Haemoglobin decreased [Recovered/Resolved]
  - Cough [Recovered/Resolved]
  - Platelet count decreased [Unknown]
  - Diarrhoea [Unknown]
  - Haemorrhage [Recovered/Resolved]
  - Pyrexia [Recovered/Resolved]

NARRATIVE: CASE EVENT DATE: 20191103
